FAERS Safety Report 6518251-9 (Version None)
Quarter: 2009Q4

REPORT INFORMATION
  Report Type: 
  Country: None (occurrence: None)
  Receive Date: 20091223
  Receipt Date: 20091223
  Transmission Date: 20100525
  Serious: Yes (Other)
  Sender: FDA-Public Use
  Company Number: None

PATIENT
  Sex: Female
  Weight: 50 kg

DRUGS (2)
  1. VANCOMYCIN [Suspect]
     Indication: WOUND
     Dosage: 1 GRAM- 1.25 GRAMS Q8H IVPB
     Route: 042
     Dates: start: 20091204, end: 20091209
  2. PIPERACILLIN AND TAZOBACTAM [Concomitant]

REACTIONS (1)
  - RENAL FAILURE ACUTE [None]
